FAERS Safety Report 6732104-2 (Version None)
Quarter: 2010Q2

REPORT INFORMATION
  Report Type: 
  Country: None (occurrence: None)
  Receive Date: 20100519
  Receipt Date: 20100512
  Transmission Date: 20101027
  Serious: Yes (Other)
  Sender: FDA-Public Use
  Company Number: FR-PFIZER INC-2010042096

PATIENT
  Age: 74 Year
  Sex: Male

DRUGS (1)
  1. TAHOR [Suspect]
     Dosage: 40 MG, UNK

REACTIONS (1)
  - BLOOD PRESSURE INCREASED [None]
